FAERS Safety Report 10203785 (Version 1)
Quarter: 2014Q2

REPORT INFORMATION
  Report Type: Spontaneous
  Country: US (occurrence: US)
  Receive Date: 20140529
  Receipt Date: 20140529
  Transmission Date: 20141212
  Serious: Yes (Other)
  Sender: FDA-Public Use
  Company Number: US-BAYER-2014-080056

PATIENT
  Age: 46 Year
  Sex: Female

DRUGS (2)
  1. YAZ [Suspect]
     Indication: VAGINAL HAEMORRHAGE
  2. AMBIEN [Concomitant]
     Indication: DEPRESSION

REACTIONS (1)
  - Deep vein thrombosis [Recovering/Resolving]
